FAERS Safety Report 7596762-5 (Version None)
Quarter: 2011Q3

REPORT INFORMATION
  Report Type: 
  Country: None (occurrence: None)
  Receive Date: 20110708
  Receipt Date: 20110628
  Transmission Date: 20111222
  Serious: Yes (Hospitalization, Other)
  Sender: FDA-Public Use
  Company Number: MX-ASTELLAS-2011US003608

PATIENT
  Sex: Female

DRUGS (1)
  1. TARCEVA [Suspect]
     Indication: LUNG ADENOCARCINOMA
     Dosage: 150 MG, UID/QD
     Route: 048
     Dates: start: 20100716

REACTIONS (9)
  - PERICARDIAL EFFUSION [None]
  - CARDIOMEGALY [None]
  - AMAUROSIS FUGAX [None]
  - HYPOTENSION [None]
  - X-RAY ABNORMAL [None]
  - DYSPNOEA [None]
  - BALANCE DISORDER [None]
  - SKIN LESION [None]
  - DIARRHOEA [None]
